FAERS Safety Report 5038194-X (Version None)
Quarter: 2006Q2

REPORT INFORMATION
  Report Type: 
  Country: None (occurrence: None)
  Receive Date: 20060622
  Receipt Date: 20060607
  Transmission Date: 20061013
  Serious: Yes (Other)
  Sender: FDA-Public Use
  Company Number: 2006058430

PATIENT
  Sex: Male
  Weight: 98.4306 kg

DRUGS (1)
  1. CELEBREX [Suspect]
     Indication: BACK DISORDER
     Dosage: 400 MG (200 MG, 2 IN 1 D)
     Dates: start: 19980501, end: 19980901

REACTIONS (10)
  - ARTHRITIS [None]
  - CARDIAC DISORDER [None]
  - CARDIOVASCULAR DISORDER [None]
  - DEPRESSION [None]
  - DIARRHOEA [None]
  - GASTROOESOPHAGEAL REFLUX DISEASE [None]
  - MYOCARDIAL INFARCTION [None]
  - NAUSEA [None]
  - SUICIDAL IDEATION [None]
  - THROMBOSIS [None]
